FAERS Safety Report 23996627 (Version 2)
Quarter: 2024Q3

REPORT INFORMATION
  Report Type: Spontaneous
  Country: US (occurrence: US)
  Receive Date: 20240620
  Receipt Date: 20240807
  Transmission Date: 20241017
  Serious: No
  Sender: LUNDBECK
  Company Number: US-LUNDBECK-DKLU3078095

PATIENT

DRUGS (1)
  1. VYEPTI [Suspect]
     Active Substance: EPTINEZUMAB\EPTINEZUMAB-JJMR
     Indication: Migraine
     Route: 041
     Dates: start: 20240508

REACTIONS (4)
  - Fatigue [Unknown]
  - Therapeutic response decreased [Unknown]
  - Taste disorder [Unknown]
  - Pain [Unknown]
